FAERS Safety Report 8295244-5 (Version None)
Quarter: 2012Q2

REPORT INFORMATION
  Report Type: 
  Country: None (occurrence: None)
  Receive Date: 20120418
  Receipt Date: 20120413
  Transmission Date: 20120825
  Serious: No
  Sender: FDA-Public Use
  Company Number: US-BAYER-2012-036964

PATIENT
  Age: 40 Year
  Sex: Male
  Weight: 81.633 kg

DRUGS (1)
  1. BETASERON [Suspect]
     Indication: PRODUCT USED FOR UNKNOWN INDICATION
     Dosage: 0.25 MG, QOD
     Route: 058

REACTIONS (3)
  - PAIN [None]
  - INJECTION SITE PAIN [None]
  - INJECTION SITE MASS [None]
